FAERS Safety Report 17502124 (Version 2)
Quarter: 2020Q2

REPORT INFORMATION
  Report Type: Spontaneous
  Country: US (occurrence: US)
  Receive Date: 20200305
  Receipt Date: 20200408
  Transmission Date: 20200713
  Serious: No
  Sender: FDA-Public Use
  Company Number: US-JNJFOC-20200239121

PATIENT
  Age: 21 Year
  Sex: Male
  Weight: 140.74 kg

DRUGS (3)
  1. INVEGA SUSTENNA [Suspect]
     Active Substance: PALIPERIDONE PALMITATE
     Indication: SCHIZOAFFECTIVE DISORDER
     Route: 030
     Dates: start: 2012
  2. INVEGA SUSTENNA [Suspect]
     Active Substance: PALIPERIDONE PALMITATE
     Indication: BIPOLAR DISORDER
  3. INVEGA SUSTENNA [Suspect]
     Active Substance: PALIPERIDONE PALMITATE
     Indication: POST-TRAUMATIC STRESS DISORDER

REACTIONS (4)
  - Product use in unapproved indication [Unknown]
  - Accidental exposure to product [Recovered/Resolved]
  - Product dose omission [Unknown]
  - Product leakage [Unknown]

NARRATIVE: CASE EVENT DATE: 2012
